FAERS Safety Report 9604106 (Version 1)
Quarter: 2013Q4

REPORT INFORMATION
  Report Type: Spontaneous
  Country: US (occurrence: US)
  Receive Date: 20131008
  Receipt Date: 20131008
  Transmission Date: 20140711
  Serious: Yes (Death, Hospitalization)
  Sender: FDA-Public Use
  Company Number: US-SHIRE-ALL1-2013-06760

PATIENT
  Age: 81 Year
  Sex: Female

DRUGS (2)
  1. AGRYLIN [Suspect]
     Indication: THROMBOCYTOSIS
     Dosage: UNK UNK, UNKNOWN
     Route: 048
  2. HYDROXYUREA [Suspect]
     Indication: THROMBOCYTOSIS
     Dosage: UNK UNK, UNKNOWN
     Route: 065

REACTIONS (2)
  - Extramedullary haemopoiesis [Fatal]
  - Diarrhoea [Unknown]
